FAERS Safety Report 7383513-2 (Version None)
Quarter: 2011Q1

REPORT INFORMATION
  Report Type: 
  Country: None (occurrence: None)
  Receive Date: 20110328
  Receipt Date: 20110328
  Transmission Date: 20110831
  Serious: Yes (Other)
  Sender: FDA-Public Use
  Company Number: None

PATIENT
  Age: 51 Year
  Sex: Female
  Weight: 79.3795 kg

DRUGS (1)
  1. AVAR-E-EMOLLIENT CREAM 45GM KYLEMORE [Suspect]
     Indication: ROSACEA
     Dosage: APPLY THIN LAYER TO AFFECTED A 2X'S DAILY TOP
     Route: 061
     Dates: start: 20110319, end: 20110323

REACTIONS (5)
  - RASH [None]
  - BLISTER [None]
  - BURNING SENSATION [None]
  - OROPHARYNGEAL PAIN [None]
  - PRURITUS [None]
